FAERS Safety Report 15737199 (Version 1)
Quarter: 2018Q4

REPORT INFORMATION
  Report Type: Spontaneous
  Country: GB (occurrence: GB)
  Receive Date: 20181218
  Receipt Date: 20181218
  Transmission Date: 20190205
  Serious: Yes (Congenital Anomaly, Other)
  Sender: FDA-Public Use
  Company Number: GB-MYLANLABS-2009S1006202

PATIENT
  Age: 12 Week
  Sex: Male

DRUGS (7)
  1. PRIADEL                            /00033702/ [Suspect]
     Active Substance: LITHIUM CARBONATE
     Indication: BIPOLAR DISORDER
     Dosage: 1200 MG,UNK
     Route: 064
     Dates: start: 2005
  2. FERROUS SULFATE. [Suspect]
     Active Substance: FERROUS SULFATE
     Indication: PRODUCT USED FOR UNKNOWN INDICATION
     Dosage: 200 MG,BID
     Route: 064
     Dates: start: 20081006
  3. AMOXICILLIN. [Suspect]
     Active Substance: AMOXICILLIN
     Indication: PRODUCT USED FOR UNKNOWN INDICATION
     Dosage: 250 MG,TID
     Route: 064
     Dates: start: 20080707, end: 20080714
  4. VENLAFAXINE HYDROCHLORIDE. [Suspect]
     Active Substance: VENLAFAXINE HYDROCHLORIDE
     Indication: BIPOLAR DISORDER
     Dosage: 150 MG,UNK
     Route: 064
     Dates: start: 20050624
  5. CODEINE [Suspect]
     Active Substance: CODEINE
     Indication: PRODUCT USED FOR UNKNOWN INDICATION
     Dosage: 30 MILLIGRAM, PRN
     Route: 064
  6. REBOXETINE [Suspect]
     Active Substance: REBOXETINE
     Indication: BIPOLAR DISORDER
     Dosage: 4 MG,UNK
     Route: 064
     Dates: start: 2005, end: 20080529
  7. QUETIAPINE MYLAN [Suspect]
     Active Substance: QUETIAPINE
     Indication: BIPOLAR DISORDER
     Dosage: 100 MG,UNK
     Route: 064
     Dates: start: 20080421, end: 20080616

REACTIONS (2)
  - Foetal exposure during pregnancy [Recovered/Resolved]
  - Pierre Robin syndrome [Unknown]
